FAERS Safety Report 10421339 (Version 7)
Quarter: 2018Q1

REPORT INFORMATION
  Report Type: Report from Study
  Country: CN (occurrence: CN)
  Receive Date: 20140901
  Receipt Date: 20180326
  Transmission Date: 20180508
  Serious: Yes (Life-Threatening, Hospitalization)
  Sender: FDA-Public Use
  Company Number: CN-ROCHE-1290388

PATIENT
  Age: 69 Year
  Sex: Male
  Weight: 67 kg

DRUGS (22)
  1. PREDNISONE. [Suspect]
     Active Substance: PREDNISONE
     Indication: DIFFUSE LARGE B-CELL LYMPHOMA
     Dosage: DATE OF MOST RECENT DOSE (50 MG) PRIOR TO THE EVENT : 01/AUG2013.?DATE OF MOST RECENT DOSE (100 MG)
     Route: 048
     Dates: start: 20130801
  2. OMEPRAZOLE. [Concomitant]
     Active Substance: OMEPRAZOLE
     Route: 065
     Dates: start: 20131003, end: 20131003
  3. PROMETHAZINE HYDROCHLORIDE. [Concomitant]
     Active Substance: PROMETHAZINE HYDROCHLORIDE
     Route: 065
     Dates: start: 20130814, end: 20130814
  4. COMPOUND PARACETAMOL [Concomitant]
     Route: 065
     Dates: start: 20130814, end: 20130814
  5. RECOMBINANT HUMAN INTERLEUKIN-11 [Concomitant]
     Route: 065
     Dates: start: 20131014, end: 20131018
  6. OMEPRAZOLE. [Concomitant]
     Active Substance: OMEPRAZOLE
     Route: 065
     Dates: start: 20130912, end: 20130916
  7. OMEPRAZOLE. [Concomitant]
     Active Substance: OMEPRAZOLE
     Route: 065
     Dates: start: 20130801, end: 20130805
  8. PROMETHAZINE HYDROCHLORIDE. [Concomitant]
     Active Substance: PROMETHAZINE HYDROCHLORIDE
     Route: 065
     Dates: start: 20131024, end: 20131024
  9. PALONOSETRON HYDROCHLORIDE. [Concomitant]
     Active Substance: PALONOSETRON HYDROCHLORIDE
     Route: 065
     Dates: start: 20131004, end: 20131004
  10. COMPOUND PARACETAMOL [Concomitant]
     Route: 065
     Dates: start: 20130731, end: 20130731
  11. LEVOFLOXACIN. [Concomitant]
     Active Substance: LEVOFLOXACIN
     Route: 065
     Dates: start: 20130808, end: 20130811
  12. RECOMBINANT HUMAN INTERLEUKIN-11 [Concomitant]
     Indication: WHITE BLOOD CELL COUNT INCREASED
     Route: 065
     Dates: start: 20130811, end: 20130814
  13. DOXORUBICIN [Suspect]
     Active Substance: DOXORUBICIN
     Indication: DIFFUSE LARGE B-CELL LYMPHOMA
     Dosage: DATE OF MOST RECENT DOSE (88.68 MG) PRIOR TO THE EVENT : 01/AUG/2013.?DATE OF MOST RECENT DOSE (88.6
     Route: 042
     Dates: start: 20130801
  14. VINCRISTINE [Suspect]
     Active Substance: VINCRISTINE
     Indication: DIFFUSE LARGE B-CELL LYMPHOMA
     Dosage: 1.4 TO 2.0 MG/M2 DOSE AS PER PROTOCOL?DATE OF MOST RECENT DOSE (2 MG) PRIOR TO THE EVENT : 01/AUG/20
     Route: 040
     Dates: start: 20130801
  15. OBINUTUZUMAB. [Suspect]
     Active Substance: OBINUTUZUMAB
     Indication: DIFFUSE LARGE B-CELL LYMPHOMA
     Dosage: DATE OF MOST RECENT DOSE (VOLUME : 40 ML AND CONCENTERATION : 4 MG/ML) PRIOR TO THE EVENT : 31/JUL/2
     Route: 042
     Dates: start: 20130731
  16. PROMETHAZINE HYDROCHLORIDE. [Concomitant]
     Active Substance: PROMETHAZINE HYDROCHLORIDE
     Indication: SEDATION
     Route: 065
     Dates: start: 20131003, end: 20131003
  17. LANSOPRAZOLE. [Concomitant]
     Active Substance: LANSOPRAZOLE
     Route: 065
     Dates: start: 20130801, end: 20130801
  18. PALONOSETRON HYDROCHLORIDE. [Concomitant]
     Active Substance: PALONOSETRON HYDROCHLORIDE
     Route: 065
     Dates: start: 20130801, end: 20130801
  19. CYCLOPHOSPHAMIDE. [Suspect]
     Active Substance: CYCLOPHOSPHAMIDE
     Indication: DIFFUSE LARGE B-CELL LYMPHOMA
     Dosage: DATE OF MOST RECENT DOSE (1000 MG) PRIOR TO THE EVENT : 01/AUG/2013.?DATE OF MOST RECENT DOSE (1330
     Route: 042
     Dates: start: 20130801
  20. PROMETHAZINE HYDROCHLORIDE. [Concomitant]
     Active Substance: PROMETHAZINE HYDROCHLORIDE
     Route: 065
     Dates: start: 20130807, end: 20130807
  21. COMPOUND PARACETAMOL [Concomitant]
     Route: 065
     Dates: start: 20130807, end: 20130807
  22. COMPOUND PARACETAMOL [Concomitant]
     Route: 065
     Dates: start: 20131001, end: 20131001

REACTIONS (4)
  - Thrombocytopenia [Recovered/Resolved]
  - Neutropenia [Recovered/Resolved]
  - Leukopenia [Recovered/Resolved]
  - Febrile neutropenia [Recovered/Resolved]

NARRATIVE: CASE EVENT DATE: 20130802
